FAERS Safety Report 18326192 (Version 2)
Quarter: 2020Q4

REPORT INFORMATION
  Report Type: Report from Study
  Country: FR (occurrence: FR)
  Receive Date: 20200929
  Receipt Date: 20201016
  Transmission Date: 20210113
  Serious: Yes (Hospitalization)
  Sender: FDA-Public Use
  Company Number: FR-PFIZER INC-2020362740

PATIENT
  Age: 74 Year
  Sex: Male
  Weight: 74 kg

DRUGS (20)
  1. INOTUZUMAB OZOGAMICIN [Suspect]
     Active Substance: INOTUZUMAB OZOGAMICIN
     Dosage: 0.93 MG, CYCLIC  (INDUCTION, I, D15)
     Dates: start: 20200812
  2. CYTARABINE. [Suspect]
     Active Substance: CYTARABINE
     Dosage: 40 MG, CYCLIC (INDUCTION II, D2)
     Dates: start: 20200828
  3. CYCLOPHOSPHAMIDE. [Suspect]
     Active Substance: CYCLOPHOSPHAMIDE
     Dosage: 550 MG, CYCLIC (INDUCTION II, D3)
     Dates: start: 20200829
  4. XATRAL [Concomitant]
     Active Substance: ALFUZOSIN
     Dosage: 2.5 MG IN THE MORNING AND 5 MG IN THE EVENING
  5. AVODART [Concomitant]
     Active Substance: DUTASTERIDE
     Dosage: 0.5 MG, DAILY
  6. VINCRISTINE SULFATE. [Suspect]
     Active Substance: VINCRISTINE SULFATE
     Dosage: 1 MG, CYCLIC (INDUCTION I, D1)
     Dates: start: 20200729
  7. TAZOCILLINE [Concomitant]
     Active Substance: PIPERACILLIN SODIUM\TAZOBACTAM SODIUM
     Indication: ANTIBIOTIC THERAPY
     Dosage: 4 G
     Route: 042
     Dates: start: 20200903
  8. PANTOPRAZOLE [Concomitant]
     Active Substance: PANTOPRAZOLE
     Dosage: 20 MG, DAILY
  9. INOTUZUMAB OZOGAMICIN [Suspect]
     Active Substance: INOTUZUMAB OZOGAMICIN
     Dosage: 1.5 MG, CYCLIC  (INDUCTION, I, D1)
     Dates: start: 20200729
  10. VINCRISTINE SULFATE. [Suspect]
     Active Substance: VINCRISTINE SULFATE
     Dosage: 1 MG, CYCLIC (INDUCTION I, D15)
     Dates: start: 20200512
  11. CYCLOPHOSPHAMIDE. [Suspect]
     Active Substance: CYCLOPHOSPHAMIDE
     Dosage: 550 MG, CYCLIC (INDUCTION II, D1)
     Dates: start: 20200827
  12. GAVISCON [SODIUM ALGINATE;SODIUM BICARBONATE] [Concomitant]
     Active Substance: SODIUM ALGINATE\SODIUM BICARBONATE
     Indication: ABDOMINAL PAIN
     Dosage: 1 DF, AS NEEDED
  13. INOTUZUMAB OZOGAMICIN [Suspect]
     Active Substance: INOTUZUMAB OZOGAMICIN
     Dosage: 1.5 MG, CYCLIC  (INDUCTION, I, D8)
     Dates: start: 20200805
  14. VINCRISTINE SULFATE. [Suspect]
     Active Substance: VINCRISTINE SULFATE
     Dosage: 1 MG, CYCLIC (INDUCTION I, D8)
     Dates: start: 20200805
  15. AMLODIPINE [Concomitant]
     Active Substance: AMLODIPINE BESYLATE
     Dosage: 5 MG, DAILY
  16. INOTUZUMAB OZOGAMICIN [Suspect]
     Active Substance: INOTUZUMAB OZOGAMICIN
     Dosage: 0.90 MG, CYCLIC  (INDUCTION, II, D8)
     Dates: start: 20200903
  17. VINCRISTINE SULFATE. [Suspect]
     Active Substance: VINCRISTINE SULFATE
     Dosage: 1 MG, CYCLIC (INDUCTION I, D22)
     Dates: start: 20200819
  18. INOTUZUMAB OZOGAMICIN [Suspect]
     Active Substance: INOTUZUMAB OZOGAMICIN
     Dosage: 0.93 MG, CYCLIC  (INDUCTION, II, D1)
     Dates: start: 20200827
  19. METHOTREXATE. [Suspect]
     Active Substance: METHOTREXATE
     Dosage: 15 MG, CYCLIC (INDUCTION II, D2)
     Route: 037
     Dates: start: 20200828
  20. CYCLOPHOSPHAMIDE. [Suspect]
     Active Substance: CYCLOPHOSPHAMIDE
     Dosage: 550 MG, CYCLIC (INDUCTION II, D2)
     Dates: start: 20200828

REACTIONS (2)
  - Dyspnoea [Not Recovered/Not Resolved]
  - Pyrexia [Not Recovered/Not Resolved]

NARRATIVE: CASE EVENT DATE: 20200903
